FAERS Safety Report 9770666 (Version 3)
Quarter: 2015Q2

REPORT INFORMATION
  Report Type: Spontaneous
  Country: US (occurrence: US)
  Receive Date: 20131218
  Receipt Date: 20150422
  Transmission Date: 20150821
  Serious: Yes (Hospitalization, Other)
  Sender: FDA-Public Use
  Company Number: US-GLAXOSMITHKLINE-A1053999A

PATIENT
  Age: 55 Year
  Sex: Female

DRUGS (6)
  1. LAMICTAL [Suspect]
     Active Substance: LAMOTRIGINE
     Indication: BIPOLAR DISORDER
     Dosage: 200 MGUNKNOWN
     Route: 065
     Dates: start: 20070419
  2. LOSARTAN [Concomitant]
     Active Substance: LOSARTAN
  3. REMICADE [Concomitant]
     Active Substance: INFLIXIMAB
  4. LEXAPRO [Concomitant]
     Active Substance: ESCITALOPRAM OXALATE
  5. VITAMIN B12 [Concomitant]
     Active Substance: CYANOCOBALAMIN
  6. LAMICTAL [Suspect]
     Active Substance: LAMOTRIGINE
     Dosage: 200 MGUNKNOWN
     Route: 048
     Dates: start: 2010

REACTIONS (8)
  - Laryngitis [Unknown]
  - Crohn^s disease [Unknown]
  - Type 2 diabetes mellitus [Not Recovered/Not Resolved]
  - Hip arthroplasty [Unknown]
  - Spinal fusion surgery [Unknown]
  - Drug administration error [Unknown]
  - Intestinal resection [Unknown]
  - Respiratory arrest [Recovering/Resolving]

NARRATIVE: CASE EVENT DATE: 201101
